FAERS Safety Report 5904568-5 (Version None)
Quarter: 2008Q4

REPORT INFORMATION
  Report Type: 
  Country: None (occurrence: None)
  Receive Date: 20081001
  Receipt Date: 20080918
  Transmission Date: 20090506
  Serious: Yes (Other)
  Sender: FDA-Public Use
  Company Number: GB-ELI_LILLY_AND_COMPANY-GB200809004715

PATIENT
  Age: 65 Year
  Sex: Male

DRUGS (14)
  1. FORTEO [Suspect]
     Indication: OSTEOPOROSIS
     Dates: start: 20080601, end: 20080801
  2. ADCAL-D3 [Concomitant]
     Dosage: 2 D/F, DAILY (1/D)
     Route: 065
  3. AMOXICILLIN [Concomitant]
     Dosage: 500 MG, 2/D
     Route: 065
  4. CEFACLOR [Concomitant]
     Dosage: 375 MG, 2/D FOR 4 WEEKS
     Route: 065
  5. DOXYCYCLINE HYCLATE [Concomitant]
     Dosage: 100 UG, DAILY (1/D) FOR 4 WEEKS
     Route: 065
  6. IPRATROPIUM BROMIDE [Concomitant]
     Dosage: 20 UG, AS NEEDED
     Route: 065
  7. ACETAMINOPHEN [Concomitant]
     Dosage: 500 MG, 4/D
     Route: 065
  8. PHYLLOCONTIN [Concomitant]
     Dosage: 225 MG, UNKNOWN
     Route: 065
  9. PREDNISOLONE [Concomitant]
     Dosage: 5 MG, AS NEEDED
     Route: 065
  10. QVAR 40 [Concomitant]
     Dosage: 200 UG, 2/D
     Route: 065
  11. SALBUTAMOL [Concomitant]
     Dosage: 100 UG, AS NEEDED
     Route: 065
  12. SODIUM CHLORIDE [Concomitant]
     Dosage: 0.9 %, UNKNOWN
     Route: 065
  13. SALMETEROL [Concomitant]
     Dosage: 50 UG, 2/D
     Route: 065
  14. STRONTIUM RANELATE [Concomitant]
     Dosage: 2 G, DAILY (1/D)

REACTIONS (1)
  - ATRIAL FIBRILLATION [None]
